FAERS Safety Report 6317067-6 (Version None)
Quarter: 2009Q3

REPORT INFORMATION
  Report Type: 
  Country: None (occurrence: None)
  Receive Date: 20090820
  Receipt Date: 20090813
  Transmission Date: 20100115
  Serious: Yes (Hospitalization)
  Sender: FDA-Public Use
  Company Number: US-PFIZER INC-2009257068

PATIENT
  Sex: Female
  Weight: 58.503 kg

DRUGS (4)
  1. LIPITOR [Suspect]
     Indication: BLOOD CHOLESTEROL
     Dates: end: 20090401
  2. MORPHINE HYDROCHLORIDE [Suspect]
     Indication: PAIN
     Dates: start: 20090601, end: 20090601
  3. FISH OIL [Concomitant]
     Dosage: UNK
  4. VITAMINS [Concomitant]
     Dosage: UNK

REACTIONS (4)
  - FEELING ABNORMAL [None]
  - HEART RATE DECREASED [None]
  - MUSCULOSKELETAL STIFFNESS [None]
  - PANCREATIC DISORDER [None]
